FAERS Safety Report 4738812-7 (Version None)
Quarter: 2005Q3

REPORT INFORMATION
  Report Type: 
  Country: None (occurrence: None)
  Receive Date: 20050804
  Receipt Date: 20050727
  Transmission Date: 20060218
  Serious: Yes (Life-Threatening)
  Sender: FDA-Public Use
  Company Number: 2005107373

PATIENT
  Age: 28 Year
  Sex: Female

DRUGS (1)
  1. CETIRIZINE HCL [Suspect]
     Indication: SEASONAL ALLERGY
     Dosage: 10 MG, ORAL
     Route: 048
     Dates: start: 20050623, end: 20050623

REACTIONS (3)
  - FALL [None]
  - LONG QT SYNDROME [None]
  - TORSADE DE POINTES [None]
